FAERS Safety Report 4648730-0 (Version None)
Quarter: 2005Q2

REPORT INFORMATION
  Report Type: 
  Country: None (occurrence: None)
  Receive Date: 20050429
  Receipt Date: 20050425
  Transmission Date: 20051028
  Serious: Yes (Death)
  Sender: FDA-Public Use
  Company Number: PHFR2005GB01587

PATIENT
  Age: 62 Year
  Sex: Male

DRUGS (9)
  1. CYCLOSPORINE [Suspect]
     Dosage: 550MG/DAY
     Route: 048
     Dates: start: 20041001
  2. TAMSULOSIN [Suspect]
     Dosage: 400 UG/DAY
     Route: 048
     Dates: start: 20041111
  3. PREDNISOLONE [Concomitant]
     Dosage: 20 MG, QD
     Route: 048
  4. MYCOPHENOLATE MOFETIL [Concomitant]
     Dosage: 1 G, BID
     Route: 048
  5. LANSOPRAZOLE [Concomitant]
     Dosage: 30 MG/DAY
     Route: 048
  6. CALCITRIOL [Concomitant]
     Dosage: 0.25 UG, QD
     Route: 048
  7. COTRIM [Concomitant]
     Dosage: 480 MG, QD
  8. FUROSEMIDE [Concomitant]
     Route: 065
  9. SIMVASTATIN [Suspect]
     Indication: HYPERCHOLESTEROLAEMIA
     Dosage: 40 MG/DAY
     Route: 048
     Dates: start: 20010901

REACTIONS (3)
  - BLOOD CREATINE PHOSPHOKINASE INCREASED [None]
  - BLOOD POTASSIUM INCREASED [None]
  - RHABDOMYOLYSIS [None]
